FAERS Safety Report 11330568 (Version 1)
Quarter: 2015Q3

REPORT INFORMATION
  Report Type: Report from Study
  Country: GB (occurrence: GB)
  Receive Date: 20150803
  Receipt Date: 20150803
  Transmission Date: 20151125
  Serious: Yes (Hospitalization, Other)
  Sender: FDA-Public Use
  Company Number: GB-ROCHE-1614249

PATIENT
  Sex: Female

DRUGS (6)
  1. ONDANSETRON [Concomitant]
     Active Substance: ONDANSETRON
     Indication: PROPHYLAXIS OF NAUSEA AND VOMITING
  2. EPIRUBICIN [Suspect]
     Active Substance: EPIRUBICIN
     Indication: OVARIAN EPITHELIAL CANCER
     Route: 040
  3. DEXAMETHASONE. [Concomitant]
     Active Substance: DEXAMETHASONE
     Indication: PROPHYLAXIS OF NAUSEA AND VOMITING
  4. CAPECITABINE. [Suspect]
     Active Substance: CAPECITABINE
     Indication: OVARIAN EPITHELIAL CANCER
     Route: 048
  5. CISPLATIN. [Suspect]
     Active Substance: CISPLATIN
     Indication: OVARIAN EPITHELIAL CANCER
     Route: 041
  6. APREPITANT. [Concomitant]
     Active Substance: APREPITANT
     Indication: PROPHYLAXIS OF NAUSEA AND VOMITING

REACTIONS (30)
  - Chest pain [Unknown]
  - Palmar-plantar erythrodysaesthesia syndrome [Unknown]
  - Arthralgia [Unknown]
  - Constipation [Unknown]
  - Blood bilirubin increased [Unknown]
  - Neutropenia [Unknown]
  - Thrombocytopenia [Unknown]
  - White blood cell count decreased [Unknown]
  - Neurotoxicity [Unknown]
  - Epistaxis [Unknown]
  - Blood calcium abnormal [Unknown]
  - Rash [Unknown]
  - Angina pectoris [Unknown]
  - Palpitations [Unknown]
  - Blood magnesium abnormal [Unknown]
  - Decreased appetite [Unknown]
  - Fatigue [Unknown]
  - Diarrhoea [Unknown]
  - Pyrexia [Unknown]
  - Infection [Unknown]
  - Blood alkaline phosphatase increased [Unknown]
  - Blood creatinine increased [Unknown]
  - Alopecia [Unknown]
  - Anaemia [Unknown]
  - Febrile neutropenia [Unknown]
  - Alanine aminotransferase increased [Unknown]
  - Nausea [Unknown]
  - Stomatitis [Unknown]
  - Vomiting [Unknown]
  - Dyspepsia [Unknown]
